FAERS Safety Report 4316170-X (Version None)
Quarter: 2004Q1

REPORT INFORMATION
  Report Type: 
  Country: None (occurrence: None)
  Receive Date: 20040312
  Receipt Date: 20040226
  Transmission Date: 20041129
  Serious: Yes (Other)
  Sender: FDA-Public Use
  Company Number: PHEH2004US02447

PATIENT
  Age: 75 Year
  Sex: Female

DRUGS (4)
  1. AREDIA [Suspect]
     Indication: BREAST CANCER METASTATIC
     Dosage: 90 MG, QMO
     Dates: start: 20000901, end: 20020401
  2. ZOMETA [Suspect]
     Indication: BREAST CANCER METASTATIC
     Dosage: 4 MG, QMO
     Dates: start: 20020501
  3. TAMOXIFEN [Concomitant]
     Dosage: 20 MG, UNK
     Dates: start: 20000901, end: 20010120
  4. ARIMIDEX [Concomitant]
     Dosage: 1 MG, UNK
     Dates: start: 20010122

REACTIONS (8)
  - GINGIVITIS [None]
  - INFECTION [None]
  - INFLAMMATION [None]
  - JAW OPERATION [None]
  - OSTEOMYELITIS [None]
  - OSTEONECROSIS [None]
  - STREPTOCOCCAL INFECTION [None]
  - TOOTH EXTRACTION [None]
